FAERS Safety Report 7924194-6 (Version None)
Quarter: 2011Q4

REPORT INFORMATION
  Report Type: 
  Country: None (occurrence: None)
  Receive Date: 20111117
  Receipt Date: 20110215
  Transmission Date: 20120403
  Serious: No
  Sender: FDA-Public Use
  Company Number: US-AMGEN-USASP2011009039

PATIENT
  Age: 52 Year
  Sex: Female

DRUGS (1)
  1. ENBREL [Suspect]
     Indication: PSORIATIC ARTHROPATHY
     Dosage: 50 MG, QWK
     Dates: start: 20030101

REACTIONS (6)
  - INFLUENZA LIKE ILLNESS [None]
  - COUGH [None]
  - NODULE [None]
  - NASAL CONGESTION [None]
  - JOINT STIFFNESS [None]
  - OROPHARYNGEAL PAIN [None]
